FAERS Safety Report 9121112 (Version 1)
Quarter: 2013Q1

REPORT INFORMATION
  Report Type: Spontaneous
  Country: GB (occurrence: GB)
  Receive Date: 20130226
  Receipt Date: 20130226
  Transmission Date: 20140127
  Serious: Yes (Other)
  Sender: FDA-Public Use
  Company Number: PHFR2003GB00460

PATIENT
  Sex: Female

DRUGS (2)
  1. CLOZARIL (CLOZAPINE) [Suspect]
     Indication: SCHIZOPHRENIA
     Dosage: UNK UKN, UNK
     Route: 048
     Dates: start: 19980609
  2. CLOZARIL (CLOZAPINE) [Suspect]
     Dosage: UNK
     Dates: start: 20010701

REACTIONS (3)
  - Emphysema [Unknown]
  - Influenza like illness [Unknown]
  - Body temperature increased [Unknown]
